FAERS Safety Report 6630931-3 (Version None)
Quarter: 2010Q1

REPORT INFORMATION
  Report Type: 
  Country: None (occurrence: None)
  Receive Date: 20100311
  Receipt Date: 20100302
  Transmission Date: 20100710
  Serious: Yes (Other)
  Sender: FDA-Public Use
  Company Number: US-AMGEN-US398359

PATIENT
  Age: 52 Year
  Sex: Female

DRUGS (2)
  1. ETANERCEPT [Suspect]
     Indication: PSORIASIS
     Dosage: UNKNOWN
     Route: 058
  2. ETANERCEPT [Suspect]
     Indication: PSORIATIC ARTHROPATHY

REACTIONS (1)
  - SARCOIDOSIS [None]
